FAERS Safety Report 12084193 (Version 1)
Quarter: 2016Q1

REPORT INFORMATION
  Report Type: Spontaneous
  Country: US (occurrence: None)
  Receive Date: 20160216
  Receipt Date: 20160216
  Transmission Date: 20160526
  Serious: Yes (Other)
  Sender: FDA-Public Use
  Company Number: None

PATIENT
  Age: 49 Year
  Sex: Male
  Weight: 74.84 kg

DRUGS (6)
  1. PRISTIQ EXTENDED-RELEASE [Concomitant]
     Active Substance: DESVENLAFAXINE SUCCINATE
  2. BUPROPION. [Concomitant]
     Active Substance: BUPROPION
  3. MULTI VITAMIN [Concomitant]
     Active Substance: VITAMINS
  4. SAVELLA [Concomitant]
     Active Substance: MILNACIPRAN HYDROCHLORIDE
  5. BUPROPION. [Suspect]
     Active Substance: BUPROPION
     Indication: DEPRESSION
     Dosage: 1 PILL, ONCE DAILY, TAKEN BY MOUTH
     Route: 048
  6. AMITIZA [Concomitant]
     Active Substance: LUBIPROSTONE

REACTIONS (8)
  - Drug withdrawal syndrome [None]
  - Disturbance in attention [None]
  - Suicidal ideation [None]
  - No therapeutic response [None]
  - Fatigue [None]
  - Pain [None]
  - Product substitution issue [None]
  - Dizziness [None]

NARRATIVE: CASE EVENT DATE: 20160210
